FAERS Safety Report 15857230 (Version 1)
Quarter: 2019Q1

REPORT INFORMATION
  Report Type: Spontaneous
  Country: IT (occurrence: IT)
  Receive Date: 20190123
  Receipt Date: 20190123
  Transmission Date: 20190417
  Serious: Yes (Hospitalization, Other)
  Sender: FDA-Public Use
  Company Number: IT-ACCORD-102767

PATIENT
  Age: 78 Year
  Sex: Male

DRUGS (2)
  1. AMITRIPTYLINE [Suspect]
     Active Substance: AMITRIPTYLINE
     Indication: DEPRESSION
  2. CLOMIPRAMINE [Suspect]
     Active Substance: CLOMIPRAMINE
     Indication: DEPRESSION

REACTIONS (11)
  - Tremor [Recovering/Resolving]
  - Cognitive disorder [Recovering/Resolving]
  - Balance disorder [Recovering/Resolving]
  - Myoclonus [Recovered/Resolved]
  - Ataxia [Recovering/Resolving]
  - Dysarthria [Recovered/Resolved]
  - Dysmetria [Recovering/Resolving]
  - Gait disturbance [Recovered/Resolved]
  - Apathy [Recovering/Resolving]
  - Loss of personal independence in daily activities [Recovering/Resolving]
  - Dysphonia [Recovering/Resolving]
